FAERS Safety Report 6685729-7 (Version None)
Quarter: 2010Q2

REPORT INFORMATION
  Report Type: 
  Country: None (occurrence: None)
  Receive Date: 20100419
  Receipt Date: 20100413
  Transmission Date: 20101027
  Serious: No
  Sender: FDA-Public Use
  Company Number: 2010BI004762

PATIENT
  Age: 55 Year
  Sex: Female
  Weight: 45 kg

DRUGS (18)
  1. TYSABRI [Suspect]
     Indication: MULTIPLE SCLEROSIS
     Route: 042
     Dates: start: 20060926, end: 20090908
  2. SYNTHROID [Concomitant]
     Route: 048
  3. SYNTHROID [Concomitant]
  4. NIASPAN [Concomitant]
     Route: 048
  5. DIOVAN [Concomitant]
     Route: 048
  6. FOLTX [Concomitant]
     Route: 048
  7. XANAX [Concomitant]
  8. RANITIDINE HCL [Concomitant]
     Route: 048
  9. LUNESTA [Concomitant]
     Indication: SLEEP DISORDER
     Route: 048
  10. NEXIUM [Concomitant]
     Route: 048
  11. ESTRATEST [Concomitant]
  12. LYRICA [Concomitant]
  13. LISINOPRIL [Concomitant]
  14. EXFORGE [Concomitant]
  15. LOTRISONE [Concomitant]
  16. AVELOX [Concomitant]
     Route: 048
     Dates: start: 20091001
  17. FLUTICASONE PROPIONATE [Concomitant]
     Route: 045
  18. ASTELIN [Concomitant]
     Route: 045

REACTIONS (6)
  - EAR INFECTION [None]
  - HEADACHE [None]
  - HEARING IMPAIRED [None]
  - PNEUMONIA STAPHYLOCOCCAL [None]
  - PULMONARY FIBROSIS [None]
  - ROAD TRAFFIC ACCIDENT [None]
